FAERS Safety Report 6325086-9 (Version None)
Quarter: 2009Q3

REPORT INFORMATION
  Report Type: 
  Country: None (occurrence: None)
  Receive Date: 20090824
  Receipt Date: 20090709
  Transmission Date: 20100115
  Serious: No
  Sender: FDA-Public Use
  Company Number: US-ABBOTT-09P-163-0584617-00

PATIENT
  Sex: Female
  Weight: 71.732 kg

DRUGS (4)
  1. NIASPAN [Suspect]
     Indication: HIGH DENSITY LIPOPROTEIN DECREASED
     Dosage: 500MG QHS
     Dates: start: 20090601
  2. INSULIN [Concomitant]
     Indication: DRUG USE FOR UNKNOWN INDICATION
  3. PILLS FOR DIABETES [Concomitant]
     Indication: DIABETES MELLITUS
  4. UNKNOWN MEDICATION FOR BLOOD PRESSURE [Concomitant]
     Indication: BLOOD PRESSURE

REACTIONS (1)
  - COUGH [None]
